FAERS Safety Report 9162750 (Version 2)
Quarter: 2013Q2

REPORT INFORMATION
  Report Type: Spontaneous
  Country: US (occurrence: US)
  Receive Date: 20130314
  Receipt Date: 20130604
  Transmission Date: 20140414
  Serious: No
  Sender: FDA-Public Use
  Company Number: US-009507513-1303USA006549

PATIENT
  Age: 59 Year
  Sex: Female
  Weight: 113 kg

DRUGS (23)
  1. VICTRELIS [Suspect]
     Dosage: 800 MG, TID
     Route: 048
     Dates: end: 20130514
  2. PEGASYS [Suspect]
     Route: 058
  3. RIBASPHERE [Suspect]
     Route: 048
  4. AMLODIPINE [Concomitant]
  5. METOPROLOL [Concomitant]
  6. AMBIEN [Concomitant]
     Route: 048
  7. CITALOPRAM [Concomitant]
     Route: 048
  8. NEXIUM [Concomitant]
     Route: 048
  9. CHOLECALCIFEROL [Concomitant]
     Dosage: 10000 UNT
     Route: 048
  10. PROCRIT [Concomitant]
     Dosage: 20000/ML
     Route: 058
  11. AFRIN [Concomitant]
  12. NEUPOGEN [Concomitant]
     Dosage: 300/0.5
     Route: 058
  13. FEXOFENADINE HYDROCHLORIDE [Concomitant]
     Route: 048
  14. SINGULAIR [Concomitant]
     Route: 048
  15. PRILOSEC [Concomitant]
     Route: 048
  16. SYNTHROID [Concomitant]
     Route: 048
  17. TYLENOL [Concomitant]
  18. FLONASE SPR [Concomitant]
  19. ALBUTEROL [Concomitant]
  20. BENADRYL ALLERGY [Concomitant]
     Route: 048
  21. NEOSPORIN ECZEMA ESSENTIALS ANTI ITCH [Concomitant]
  22. SPIRONOLACT [Concomitant]
     Route: 048
  23. CLARITIN [Concomitant]
     Route: 048

REACTIONS (12)
  - Epistaxis [Unknown]
  - White blood cell count decreased [Unknown]
  - Anaemia [Unknown]
  - Fatigue [Unknown]
  - Dysgeusia [Unknown]
  - Headache [Unknown]
  - Rash [Unknown]
  - Pruritus [Unknown]
  - Face oedema [Unknown]
  - Local swelling [Unknown]
  - Localised oedema [Unknown]
  - Adverse event [Unknown]
